FAERS Safety Report 4661346-5 (Version None)
Quarter: 2005Q2

REPORT INFORMATION
  Report Type: 
  Country: None (occurrence: None)
  Receive Date: 20050512
  Receipt Date: 20050506
  Transmission Date: 20051028
  Serious: Yes (Death)
  Sender: FDA-Public Use
  Company Number: 05-05-0765

PATIENT
  Sex: Female

DRUGS (4)
  1. ALBUTEROL [Suspect]
     Dosage: INHALATION
     Route: 055
  2. PREDNISOLONE [Suspect]
  3. ATROVENT [Suspect]
     Dosage: INHALATION
     Route: 055
  4. FOSAMAX [Suspect]

REACTIONS (4)
  - BRONCHITIS ACUTE [None]
  - CARDIAC FAILURE [None]
  - CHRONIC OBSTRUCTIVE AIRWAYS DISEASE EXACERBATED [None]
  - INFECTION [None]
